FAERS Safety Report 7350271 (Version 3)
Quarter: 2013Q4

REPORT INFORMATION
  Report Type: Report from Study
  Country: JP (occurrence: JP)
  Receive Date: 20100409
  Receipt Date: 20131205
  Transmission Date: 20140711
  Serious: Yes (Hospitalization)
  Sender: FDA-Public Use
  Company Number: JP-BRISTOL-MYERS SQUIBB COMPANY-15047954

PATIENT
  Age: 43 Year
  Sex: Female
  Weight: 61.7 kg

DRUGS (4)
  1. SPRYCEL [Suspect]
     Indication: CHRONIC MYELOID LEUKAEMIA
     Dosage: ONGOING
     Route: 048
     Dates: start: 20100205
  2. MAGMITT [Concomitant]
     Dosage: TABS,05FEB-10FEB,01APR-21APR2010
     Route: 048
     Dates: start: 20100205, end: 20100421
  3. MYONAL [Concomitant]
     Route: 048
     Dates: start: 20100210, end: 20100224
  4. PURSENNID [Concomitant]
     Dosage: TABS
     Route: 048
     Dates: start: 20100405, end: 20100414

REACTIONS (1)
  - Meningitis aseptic [Recovered/Resolved]
